FAERS Safety Report 19415100 (Version 4)
Quarter: 2021Q4

REPORT INFORMATION
  Report Type: Spontaneous
  Country: US (occurrence: US)
  Receive Date: 20210615
  Receipt Date: 20211001
  Transmission Date: 20220303
  Serious: Yes (Other)
  Sender: FDA-Public Use
  Company Number: US-GLAXOSMITHKLINE-USCH2021AMR036867

PATIENT
  Sex: Female
  Weight: 47.2 kg

DRUGS (4)
  1. ADVIL [Suspect]
     Active Substance: IBUPROFEN
     Indication: Product used for unknown indication
     Dosage: 1 DF
  2. GOCOVRI [Suspect]
     Active Substance: AMANTADINE
     Indication: Dyskinesia
     Dosage: 274 MG, 1D, NIGHTLY
     Route: 048
     Dates: start: 20210312
  3. LEVODOPA [Concomitant]
     Active Substance: LEVODOPA
     Indication: Parkinson^s disease
  4. RYTARY [Concomitant]
     Active Substance: CARBIDOPA\LEVODOPA
     Indication: Parkinson^s disease

REACTIONS (13)
  - Hallucination [Unknown]
  - Suicidal ideation [Unknown]
  - Dizziness [Not Recovered/Not Resolved]
  - Peripheral swelling [Not Recovered/Not Resolved]
  - Adverse drug reaction [Unknown]
  - Swelling [Unknown]
  - Erythema [Unknown]
  - Swelling face [Unknown]
  - Fatigue [Unknown]
  - Asthenia [Unknown]
  - Confusional state [Unknown]
  - Anxiety [Unknown]
  - Fall [Unknown]
